FAERS Safety Report 7115947 (Version 5)
Quarter: 2015Q2

REPORT INFORMATION
  Report Type: Report from Study
  Country: AU (occurrence: AU)
  Receive Date: 20090916
  Receipt Date: 20150520
  Transmission Date: 20150821
  Serious: Yes (Hospitalization, Disabling, Other)
  Sender: FDA-Public Use
  Company Number: PHNR2006AU01371

PATIENT
  Age: 36 Year
  Sex: Male

DRUGS (2)
  1. CLOZARIL [Suspect]
     Active Substance: CLOZAPINE
     Dosage: 75 (UNIT UNSPECIFIED)
     Route: 048
     Dates: start: 20091210, end: 2012
  2. CLOZARIL [Suspect]
     Active Substance: CLOZAPINE
     Indication: SCHIZOPHRENIA
     Dosage: 600 MG, QD (150 MG AT MORNING AND 450 MG AT NIGHT)
     Route: 048
     Dates: start: 20040119, end: 20090828

REACTIONS (12)
  - White blood cell count increased [Unknown]
  - Lymphocyte count decreased [Unknown]
  - Hepatitis C [Not Recovered/Not Resolved]
  - Mental disorder [Not Recovered/Not Resolved]
  - Haemoglobin decreased [Not Recovered/Not Resolved]
  - White blood cell count decreased [Recovered/Resolved]
  - Neutrophil count increased [Unknown]
  - Haematocrit decreased [Not Recovered/Not Resolved]
  - Neutrophil count decreased [Recovered/Resolved]
  - Platelet count decreased [Not Recovered/Not Resolved]
  - Liver function test abnormal [Not Recovered/Not Resolved]
  - Mean cell volume increased [Not Recovered/Not Resolved]

NARRATIVE: CASE EVENT DATE: 20060420
